FAERS Safety Report 21721429 (Version 1)
Quarter: 2022Q4

REPORT INFORMATION
  Report Type: Spontaneous
  Country: JP (occurrence: JP)
  Receive Date: 20221213
  Receipt Date: 20221213
  Transmission Date: 20230113
  Serious: Yes (Death, Other)
  Sender: FDA-Public Use
  Company Number: JP-MSD-M2022-52593

PATIENT
  Age: 84 Year
  Sex: Male

DRUGS (15)
  1. ZERBAXA [Suspect]
     Active Substance: CEFTOLOZANE SULFATE\TAZOBACTAM SODIUM
     Indication: Tracheal disorder
     Dosage: 750 MILLIGRAM, TID
     Route: 041
     Dates: start: 20220927, end: 20221007
  2. ZERBAXA [Suspect]
     Active Substance: CEFTOLOZANE SULFATE\TAZOBACTAM SODIUM
     Indication: Acute respiratory distress syndrome
  3. ZERBAXA [Suspect]
     Active Substance: CEFTOLOZANE SULFATE\TAZOBACTAM SODIUM
     Indication: Intestinal obstruction
  4. ZERBAXA [Suspect]
     Active Substance: CEFTOLOZANE SULFATE\TAZOBACTAM SODIUM
     Indication: Peritonitis
  5. ZERBAXA [Suspect]
     Active Substance: CEFTOLOZANE SULFATE\TAZOBACTAM SODIUM
     Indication: Disseminated intravascular coagulation
  6. ZERBAXA [Suspect]
     Active Substance: CEFTOLOZANE SULFATE\TAZOBACTAM SODIUM
     Indication: Multiple organ dysfunction syndrome
  7. CUBICIN [Suspect]
     Active Substance: DAPTOMYCIN
     Indication: Tracheal disorder
     Dosage: UNK
     Route: 041
     Dates: start: 20221005, end: 20221007
  8. CUBICIN [Suspect]
     Active Substance: DAPTOMYCIN
     Indication: Acute respiratory distress syndrome
  9. CUBICIN [Suspect]
     Active Substance: DAPTOMYCIN
     Indication: Intestinal obstruction
  10. CUBICIN [Suspect]
     Active Substance: DAPTOMYCIN
     Indication: Peritonitis
  11. CUBICIN [Suspect]
     Active Substance: DAPTOMYCIN
     Indication: Disseminated intravascular coagulation
  12. CUBICIN [Suspect]
     Active Substance: DAPTOMYCIN
     Indication: Multiple organ dysfunction syndrome
  13. VANCOMYCIN HYDROCHLORIDE [Concomitant]
     Active Substance: VANCOMYCIN HYDROCHLORIDE
     Dosage: UNK
     Route: 042
     Dates: start: 20220704, end: 20220716
  14. VANCOMYCIN HYDROCHLORIDE [Concomitant]
     Active Substance: VANCOMYCIN HYDROCHLORIDE
     Dosage: UNK
     Route: 041
     Dates: start: 20220830, end: 20221005
  15. MINOCYCLINE HYDROCHLORIDE [Concomitant]
     Active Substance: MINOCYCLINE HYDROCHLORIDE
     Dosage: UNK
     Route: 041
     Dates: start: 20220830, end: 20221007

REACTIONS (1)
  - Death [Fatal]

NARRATIVE: CASE EVENT DATE: 20221007
